FAERS Safety Report 11746309 (Version 5)
Quarter: 2017Q4

REPORT INFORMATION
  Report Type: Spontaneous
  Country: US (occurrence: US)
  Receive Date: 20151117
  Receipt Date: 20171009
  Transmission Date: 20180320
  Serious: Yes (Death, Hospitalization, Disabling, Other)
  Sender: FDA-Public Use
  Company Number: US-009507513-1511USA008383

PATIENT
  Sex: Female

DRUGS (6)
  1. FOSAMAX [Suspect]
     Active Substance: ALENDRONATE SODIUM
     Dosage: 70 MG, QW
     Route: 048
     Dates: start: 20041209, end: 200802
  2. VITAMINS (UNSPECIFIED) [Concomitant]
     Active Substance: VITAMINS
     Indication: PRODUCT USED FOR UNKNOWN INDICATION
     Dosage: 1, QD
     Route: 065
     Dates: start: 2000, end: 2015
  3. ALENDRONATE SODIUM. [Suspect]
     Active Substance: ALENDRONATE SODIUM
     Indication: OSTEOPOROSIS
     Dosage: 70 MG, QW
     Route: 048
     Dates: start: 20080309, end: 20081218
  4. CALCIUM (UNSPECIFIED) [Concomitant]
     Active Substance: CALCIUM
     Indication: PRODUCT USED FOR UNKNOWN INDICATION
     Dosage: 500 MG, BID
     Route: 065
     Dates: start: 2008, end: 201502
  5. VITAMIN D [Concomitant]
     Active Substance: CHOLECALCIFEROL
     Indication: PRODUCT USED FOR UNKNOWN INDICATION
     Dosage: 1000 MG, QD
     Route: 065
     Dates: start: 2008, end: 201502
  6. FOSAMAX [Suspect]
     Active Substance: ALENDRONATE SODIUM
     Indication: OSTEOPOROSIS
     Dosage: 10 MG, QD
     Route: 048
     Dates: start: 19970313, end: 20041108

REACTIONS (20)
  - Spinal osteoarthritis [Unknown]
  - Fall [Unknown]
  - Asthma [Unknown]
  - Left ventricular failure [Fatal]
  - Acute hepatic failure [Fatal]
  - Femur fracture [Not Recovered/Not Resolved]
  - Lung neoplasm malignant [Unknown]
  - Deep vein thrombosis [Unknown]
  - Femur fracture [Unknown]
  - Osteoarthritis [Unknown]
  - Chronic obstructive pulmonary disease [Unknown]
  - Hysterectomy [Unknown]
  - Osteoporosis [Not Recovered/Not Resolved]
  - Acute respiratory failure [Fatal]
  - Femur fracture [Unknown]
  - Deep vein thrombosis [Unknown]
  - Cardiac failure acute [Fatal]
  - Acute myocardial infarction [Fatal]
  - Ischaemic hepatitis [Fatal]
  - Fall [Unknown]

NARRATIVE: CASE EVENT DATE: 20070829
